FAERS Safety Report 22962643 (Version 2)
Quarter: 2023Q4

REPORT INFORMATION
  Report Type: Spontaneous
  Country: US (occurrence: US)
  Receive Date: 20230920
  Receipt Date: 20231107
  Transmission Date: 20240110
  Serious: No
  Sender: FDA-Public Use
  Company Number: US-JNJFOC-20230941014

PATIENT
  Age: 32 Year
  Sex: Female

DRUGS (2)
  1. TREMFYA [Suspect]
     Active Substance: GUSELKUMAB
     Indication: Psoriasis
     Route: 058
     Dates: start: 202205
  2. TREMFYA [Suspect]
     Active Substance: GUSELKUMAB

REACTIONS (6)
  - Device issue [Unknown]
  - Product dose omission issue [Unknown]
  - Syringe issue [Unknown]
  - Product leakage [Unknown]
  - Therapy interrupted [Unknown]
  - Off label use [Unknown]

NARRATIVE: CASE EVENT DATE: 20230901
